FAERS Safety Report 6295516-X (Version None)
Quarter: 2009Q3

REPORT INFORMATION
  Report Type: 
  Country: None (occurrence: None)
  Receive Date: 20090731
  Receipt Date: 20080212
  Transmission Date: 20100115
  Serious: Yes (Other)
  Sender: FDA-Public Use
  Company Number: 2007AP001534

PATIENT
  Sex: 0

DRUGS (1)
  1. ACYCLOVIR [Suspect]
     Indication: PROPHYLAXIS
     Dosage: 60 MG/KG;TID; TRPL, IV
     Route: 064

REACTIONS (6)
  - GASTROINTESTINAL PERFORATION [None]
  - HERPES SIMPLEX DNA TEST POSITIVE [None]
  - MATERNAL DRUGS AFFECTING FOETUS [None]
  - NECROTISING ENTEROCOLITIS NEONATAL [None]
  - RECTAL HAEMORRHAGE [None]
  - TRANSAMINASES INCREASED [None]
